FAERS Safety Report 8601689-3 (Version None)
Quarter: 2012Q3

REPORT INFORMATION
  Report Type: 
  Country: None (occurrence: None)
  Receive Date: 20120817
  Receipt Date: 20120125
  Transmission Date: 20120928
  Serious: No
  Sender: FDA-Public Use
  Company Number: US-BRISTOL-MYERS SQUIBB COMPANY-16354763

PATIENT
  Age: 52 Year
  Sex: Female

DRUGS (1)
  1. SPRYCEL [Suspect]

REACTIONS (7)
  - NAUSEA [None]
  - DIARRHOEA [None]
  - HEADACHE [None]
  - SKIN DISORDER [None]
  - HYPERSENSITIVITY [None]
  - DERMATITIS ATOPIC [None]
  - NASAL OBSTRUCTION [None]
